FAERS Safety Report 25558025 (Version 1)
Quarter: 2025Q3

REPORT INFORMATION
  Report Type: Spontaneous
  Country: JP (occurrence: JP)
  Receive Date: 20250715
  Receipt Date: 20250715
  Transmission Date: 20251021
  Serious: Yes (Other)
  Sender: DAIICHI
  Company Number: JP-DAIICHI SANKYO, INC.-DS-2025-142029-JP

PATIENT
  Age: 7 Decade
  Sex: Male

DRUGS (2)
  1. ENHERTU [Suspect]
     Active Substance: FAM-TRASTUZUMAB DERUXTECAN-NXKI
     Indication: Lung neoplasm malignant
     Dosage: 5.4 MG/KG, ONCE EVERY 3 WK
     Route: 041
     Dates: end: 2025
  2. ENHERTU [Suspect]
     Active Substance: FAM-TRASTUZUMAB DERUXTECAN-NXKI
     Dosage: 4.4 MG/KG, ONCE EVERY 3 WK
     Route: 041
     Dates: start: 2025

REACTIONS (1)
  - Pancytopenia [Recovered/Resolved]
